FAERS Safety Report 11080648 (Version 1)
Quarter: 2015Q2

REPORT INFORMATION
  Report Type: Report from Study
  Country: FR (occurrence: FR)
  Receive Date: 20150501
  Receipt Date: 20150501
  Transmission Date: 20150821
  Serious: Yes (Hospitalization)
  Sender: FDA-Public Use
  Company Number: FR-ROCHE-1571274

PATIENT
  Age: 62 Year
  Sex: Male

DRUGS (2)
  1. BEVACIZUMAB [Suspect]
     Active Substance: BEVACIZUMAB
     Indication: NON-SMALL CELL LUNG CANCER
     Dosage: DATE OF LAST INJECTION 12/JAN/2015
     Route: 065
     Dates: start: 20130715
  2. PEMETREXED [Suspect]
     Active Substance: PEMETREXED
     Indication: NON-SMALL CELL LUNG CANCER
     Dosage: DATE OF LAST INJECTION 12/JAN/2015
     Route: 065
     Dates: start: 20130715

REACTIONS (3)
  - Haematuria [Unknown]
  - Renal pain [Unknown]
  - Nephrolithiasis [Unknown]

NARRATIVE: CASE EVENT DATE: 20150128
